FAERS Safety Report 5797198-X (Version None)
Quarter: 2008Q3

REPORT INFORMATION
  Report Type: 
  Country: None (occurrence: None)
  Receive Date: 20080701
  Receipt Date: 20080619
  Transmission Date: 20090109
  Serious: Yes (Other)
  Sender: FDA-Public Use
  Company Number: US-PFIZER INC-2008052035

PATIENT
  Age: 75 Year
  Sex: Male

DRUGS (5)
  1. VARENICLINE TABLETS [Suspect]
     Indication: SMOKING CESSATION THERAPY
  2. FLUOXETINE [Concomitant]
     Indication: MAJOR DEPRESSION
  3. ASPIRIN [Concomitant]
  4. NIACIN [Concomitant]
  5. METOPROLOL SUCCINATE [Concomitant]

REACTIONS (12)
  - ABNORMAL DREAMS [None]
  - AFFECTIVE DISORDER [None]
  - ASTHENIA [None]
  - CONTUSION [None]
  - DECREASED APPETITE [None]
  - DEPRESSION [None]
  - FALL [None]
  - HYPERSOMNIA [None]
  - INJURY [None]
  - IRRITABILITY [None]
  - SLEEP PHASE RHYTHM DISTURBANCE [None]
  - SUICIDAL IDEATION [None]
